FAERS Safety Report 15506213 (Version 5)
Quarter: 2022Q1

REPORT INFORMATION
  Report Type: Spontaneous
  Country: PL (occurrence: PL)
  Receive Date: 20181016
  Receipt Date: 20220329
  Transmission Date: 20220423
  Serious: Yes (Hospitalization, Other)
  Sender: FDA-Public Use
  Company Number: PL-ACCORD-067369

PATIENT
  Age: 48 Year
  Sex: Female

DRUGS (9)
  1. LACIDIPINE [Suspect]
     Active Substance: LACIDIPINE
     Indication: Hypertension
     Dosage: 4 MG, QD,(2 MG TWICE A DAY, INCREASE IN THE EVENING DOSE TO 4 MG)
     Route: 048
  2. LACIDIPINE [Suspect]
     Active Substance: LACIDIPINE
     Dosage: 2 MILLIGRAM, QD
     Route: 048
  3. LACIDIPINE [Suspect]
     Active Substance: LACIDIPINE
     Dosage: 4 MILLIGRAM, PM
     Route: 048
  4. INDAPAMIDE [Suspect]
     Active Substance: INDAPAMIDE
     Indication: Hypertension
     Dosage: 1.5 MG, QD,(1.5 MG 1 X DAY - IN THE MORNING)
     Route: 065
  5. METOPROLOL [Suspect]
     Active Substance: METOPROLOL
     Indication: Hypertension
     Dosage: 25 MG, QD,(25 MG 1 X DAY - IN THE MORNING)
     Route: 048
  6. RAMIPRIL [Suspect]
     Active Substance: RAMIPRIL
     Indication: Hypertension
     Dosage: 5 MG, QD,(5 MG 1 X DAY - IN THE EVENING)
     Route: 048
  7. CAPTOPRIL [Concomitant]
     Active Substance: CAPTOPRIL
     Indication: Hypertensive crisis
     Dosage: UNK
     Route: 065
  8. FUROSEMIDE [Concomitant]
     Active Substance: FUROSEMIDE
     Indication: Hypertensive crisis
     Dosage: UNK
     Route: 065
  9. URAPIDIL [Concomitant]
     Active Substance: URAPIDIL
     Indication: Hypertensive crisis
     Dosage: UNK
     Route: 065

REACTIONS (3)
  - Treatment noncompliance [Unknown]
  - Treatment failure [Unknown]
  - Product dose omission issue [Unknown]
